FAERS Safety Report 20219383 (Version 1)
Quarter: 2021Q4

REPORT INFORMATION
  Report Type: Spontaneous
  Country: GB (occurrence: GB)
  Receive Date: 20211222
  Receipt Date: 20211222
  Transmission Date: 20220304
  Serious: Yes (Other)
  Sender: FDA-Public Use
  Company Number: None

PATIENT
  Age: 21 Year
  Sex: Female
  Weight: 83 kg

DRUGS (4)
  1. SERTRALINE [Suspect]
     Active Substance: SERTRALINE HYDROCHLORIDE
     Indication: Product used for unknown indication
     Dosage: 50 MILLIGRAM
     Dates: start: 20211215
  2. CYCLIZINE [Concomitant]
     Active Substance: CYCLIZINE
     Indication: Nausea
     Dosage: UNK UNK, TID (TAKE ONE THREE TIMES DAILY OR AS NEEDED)
     Dates: start: 20210928, end: 20211026
  3. FOLIC ACID [Concomitant]
     Active Substance: FOLIC ACID
     Dosage: UNK
     Dates: start: 20210928
  4. SERTRALINE [Concomitant]
     Active Substance: SERTRALINE HYDROCHLORIDE
     Indication: Depressed mood
     Dosage: UNK
     Dates: start: 20211208, end: 20211215

REACTIONS (4)
  - Dyspnoea [Recovered/Resolved]
  - Lip swelling [Unknown]
  - Hypoaesthesia oral [Unknown]
  - Epistaxis [Unknown]

NARRATIVE: CASE EVENT DATE: 20211215
